FAERS Safety Report 7821768-8 (Version None)
Quarter: 2011Q4

REPORT INFORMATION
  Report Type: 
  Country: None (occurrence: None)
  Receive Date: 20111018
  Receipt Date: 20110119
  Transmission Date: 20120403
  Serious: No
  Sender: FDA-Public Use
  Company Number: US-ASTRAZENECA-2009UW18301

PATIENT
  Age: 66 Year
  Sex: Female
  Weight: 65.8 kg

DRUGS (10)
  1. ALBUTEROL [Concomitant]
     Indication: ASTHMA
  2. CALCIUM CARBONATE [Concomitant]
  3. AVELOX [Concomitant]
     Indication: RESPIRATORY TRACT INFECTION
  4. VITAMIN TAB [Concomitant]
  5. SYMBICORT [Suspect]
     Indication: ASTHMA
     Dosage: 160/4.5 UG 2 PUFFS
     Route: 055
     Dates: start: 20070101
  6. PREDNISONE [Concomitant]
     Indication: RESPIRATORY TRACT INFECTION
  7. CRESTOR [Suspect]
     Route: 048
     Dates: start: 20090630, end: 20090101
  8. PRILOSEC [Concomitant]
     Indication: ABDOMINAL DISCOMFORT
     Route: 048
  9. NAPROXEN [Concomitant]
  10. ANTACIDS [Concomitant]

REACTIONS (12)
  - GLOSSITIS [None]
  - TACHYCARDIA [None]
  - TONGUE DISORDER [None]
  - STOMATITIS [None]
  - PALPITATIONS [None]
  - NASOPHARYNGITIS [None]
  - UPPER RESPIRATORY TRACT INFECTION [None]
  - SINUSITIS [None]
  - RHINALGIA [None]
  - ORAL CANDIDIASIS [None]
  - SINUS HEADACHE [None]
  - NASAL CONGESTION [None]
